FAERS Safety Report 17215365 (Version 1)
Quarter: 2019Q4

REPORT INFORMATION
  Report Type: Spontaneous
  Country: US (occurrence: US)
  Receive Date: 20191230
  Receipt Date: 20191230
  Transmission Date: 20200122
  Serious: No
  Sender: FDA-Public Use
  Company Number: US-CLOVIS ONCOLOGY-CLO-2019-002321

PATIENT
  Sex: Female

DRUGS (2)
  1. RUBRACA [Suspect]
     Active Substance: RUCAPARIB CAMSYLATE
     Dosage: 400 MG, BID
     Route: 048
     Dates: start: 20191101
  2. RUBRACA [Suspect]
     Active Substance: RUCAPARIB CAMSYLATE
     Indication: NEOPLASM MALIGNANT
     Dosage: 400 MG, BID
     Route: 048
     Dates: end: 20191017

REACTIONS (3)
  - Constipation [Recovering/Resolving]
  - Diarrhoea [Recovering/Resolving]
  - Product use in unapproved indication [Unknown]
